FAERS Safety Report 14453593 (Version 1)
Quarter: 2018Q1

REPORT INFORMATION
  Report Type: Spontaneous
  Country: US (occurrence: US)
  Receive Date: 20180129
  Receipt Date: 20180129
  Transmission Date: 20180509
  Serious: Yes (Hospitalization)
  Sender: FDA-Public Use
  Company Number: US-OTSUKA-2018_001470

PATIENT
  Age: 63 Year
  Sex: Male

DRUGS (2)
  1. SAMSCA [Suspect]
     Active Substance: TOLVAPTAN
     Indication: INAPPROPRIATE ANTIDIURETIC HORMONE SECRETION
     Dosage: 15 MG, UNK
     Route: 065
     Dates: start: 201801, end: 20180118
  2. SAMSCA [Suspect]
     Active Substance: TOLVAPTAN
     Indication: HYPONATRAEMIC SYNDROME

REACTIONS (5)
  - Confusional state [Not Recovered/Not Resolved]
  - Disorganised speech [Unknown]
  - Blood sodium decreased [Recovered/Resolved]
  - Prescription drug used without a prescription [Unknown]
  - Insurance issue [Unknown]

NARRATIVE: CASE EVENT DATE: 201801
